FAERS Safety Report 8028699-1 (Version None)
Quarter: 2012Q1

REPORT INFORMATION
  Report Type: 
  Country: None (occurrence: None)
  Receive Date: 20120104
  Receipt Date: 20111222
  Transmission Date: 20120608
  Serious: Yes (Hospitalization, Other)
  Sender: FDA-Public Use
  Company Number: 2011P1009069

PATIENT
  Age: 52 Year
  Sex: Female
  Weight: 72.1219 kg

DRUGS (13)
  1. ABILIFY [Suspect]
     Dosage: 5 MG;QD ; 15 MG;QD ; 5 MG;QD
     Dates: start: 20110601, end: 20110601
  2. ABILIFY [Suspect]
     Dosage: 5 MG;QD ; 15 MG;QD ; 5 MG;QD
     Dates: start: 20110601, end: 20110601
  3. ABILIFY [Suspect]
     Dosage: 5 MG;QD ; 15 MG;QD ; 5 MG;QD
     Dates: end: 20110601
  4. SEROQUEL [Concomitant]
  5. ALBUTEROL [Concomitant]
  6. ZYPREXA [Suspect]
     Dosage: 10 MG;HS
  7. KLONOPIN [Concomitant]
  8. RISPERIDONE [Suspect]
     Dosage: 0.75 MG
  9. LAMOTRIGINE [Suspect]
     Indication: BIPOLAR DISORDER
     Dosage: 200 MG;QD;PO ; 175 MG;QD;PO ; 150 MG;QD;PO
     Route: 048
     Dates: start: 20101101, end: 20110101
  10. LAMOTRIGINE [Suspect]
     Indication: BIPOLAR DISORDER
     Dosage: 200 MG;QD;PO ; 175 MG;QD;PO ; 150 MG;QD;PO
     Route: 048
     Dates: start: 20110101, end: 20110101
  11. LAMOTRIGINE [Suspect]
     Indication: BIPOLAR DISORDER
     Dosage: 200 MG;QD;PO ; 175 MG;QD;PO ; 150 MG;QD;PO
     Route: 048
     Dates: start: 20110901
  12. IMODIUM [Suspect]
     Indication: DIARRHOEA
     Dates: start: 20110801, end: 20110801
  13. LEVOTHYROXINE SODIUM [Concomitant]

REACTIONS (38)
  - SOMNOLENCE [None]
  - ASTHENIA [None]
  - EXERCISE TOLERANCE DECREASED [None]
  - LIP SWELLING [None]
  - EYE PAIN [None]
  - IMPULSE-CONTROL DISORDER [None]
  - DIZZINESS [None]
  - SEROTONIN SYNDROME [None]
  - RASH PUSTULAR [None]
  - PRODUCTIVE COUGH [None]
  - LOGORRHOEA [None]
  - ACNE [None]
  - IRRITABILITY [None]
  - DRUG INEFFECTIVE [None]
  - HYPERSENSITIVITY [None]
  - PRURITUS [None]
  - SKIN EXFOLIATION [None]
  - OCULAR ICTERUS [None]
  - OROPHARYNGEAL PAIN [None]
  - CANDIDIASIS [None]
  - TREMOR [None]
  - FATIGUE [None]
  - LYMPHADENOPATHY [None]
  - MENINGITIS ASEPTIC [None]
  - ORAL DISORDER [None]
  - SUICIDAL IDEATION [None]
  - ANXIETY [None]
  - RESTLESSNESS [None]
  - ACCIDENTAL OVERDOSE [None]
  - CHROMATURIA [None]
  - CHILLS [None]
  - AGITATION [None]
  - MUSCULOSKELETAL STIFFNESS [None]
  - DIARRHOEA [None]
  - DRUG WITHDRAWAL SYNDROME [None]
  - FEELING HOT [None]
  - RASH ERYTHEMATOUS [None]
  - OCULAR HYPERAEMIA [None]
